FAERS Safety Report 15411137 (Version 1)
Quarter: 2018Q3

REPORT INFORMATION
  Report Type: Spontaneous
  Country: US (occurrence: US)
  Receive Date: 20180919
  Receipt Date: 20180919
  Transmission Date: 20181010
  Serious: Yes (Other)
  Sender: FDA-Public Use
  Company Number: None

PATIENT
  Age: 65 Year
  Sex: Female
  Weight: 90 kg

DRUGS (9)
  1. OXYCODONE [Concomitant]
     Active Substance: OXYCODONE
  2. OXYCODONE/ACETAMINOPHEN 10?325MG TB ? [Suspect]
     Active Substance: ACETAMINOPHEN\OXYCODONE HYDROCHLORIDE
     Indication: PAIN
     Dosage: ?          QUANTITY:28 DF DOSAGE FORM;?
     Route: 048
     Dates: start: 20180918
  3. SOTALOL. [Concomitant]
     Active Substance: SOTALOL
  4. SYNTHROID [Concomitant]
     Active Substance: LEVOTHYROXINE SODIUM
  5. WARFARIN [Concomitant]
     Active Substance: WARFARIN
  6. VITAMIN D3 [Concomitant]
     Active Substance: CHOLECALCIFEROL
  7. VITAMIN B12 [Concomitant]
     Active Substance: CYANOCOBALAMIN
  8. XANAX [Concomitant]
     Active Substance: ALPRAZOLAM
  9. ASPIRIN. [Concomitant]
     Active Substance: ASPIRIN

REACTIONS (10)
  - Insomnia [None]
  - Muscle spasms [None]
  - Product substitution issue [None]
  - Somnolence [None]
  - Pain in extremity [None]
  - Fatigue [None]
  - Headache [None]
  - Gait disturbance [None]
  - Feeling jittery [None]
  - Inadequate analgesia [None]

NARRATIVE: CASE EVENT DATE: 20180918
